FAERS Safety Report 10019841 (Version 2)
Quarter: 2014Q1

REPORT INFORMATION
  Report Type: Report from Study
  Country: FR (occurrence: FR)
  Receive Date: 20140318
  Receipt Date: 20140318
  Transmission Date: 20141002
  Serious: Yes (Hospitalization, Other)
  Sender: FDA-Public Use
  Company Number: FR-VERTEX PHARMACEUTICALS INC-AE-2011-000997

PATIENT
  Age: 67 Year
  Sex: Male
  Weight: 82 kg

DRUGS (4)
  1. VX-950 (TELAPREVIR) [Suspect]
     Indication: HEPATITIS C
     Dosage: 750 MG, TID
     Route: 048
     Dates: start: 20110530, end: 20110824
  2. PEGASYS [Concomitant]
     Indication: HEPATITIS C
     Dosage: 180 ?G, QW
     Route: 058
     Dates: start: 20110428
  3. COPEGUS [Concomitant]
     Indication: HEPATITIS C
     Dosage: 1000 MG, QD
     Route: 048
     Dates: start: 20110428, end: 20110921
  4. COPEGUS [Concomitant]
     Dosage: 800 MG, QD
     Route: 048
     Dates: start: 20110921

REACTIONS (6)
  - Transfusion [Recovered/Resolved]
  - Urinary tract infection [Recovered/Resolved]
  - Leukopenia [Recovered/Resolved]
  - Neutropenia [Unknown]
  - Anaemia [Unknown]
  - Asthenia [Not Recovered/Not Resolved]
